FAERS Safety Report 13738698 (Version 1)
Quarter: 2017Q3

REPORT INFORMATION
  Report Type: Report from Study
  Country: US (occurrence: US)
  Receive Date: 20170710
  Receipt Date: 20170710
  Transmission Date: 20171127
  Serious: No
  Sender: FDA-Public Use
  Company Number: US-SAOL THERAPEUTICS-2016SAO00459

PATIENT
  Sex: Female

DRUGS (20)
  1. COMPOUNDED BACLOFEN [Suspect]
     Active Substance: BACLOFEN
     Dosage: 145.75 ?G, \DAY
     Route: 037
     Dates: start: 20160411
  2. BUPIVACAINE. [Suspect]
     Active Substance: BUPIVACAINE
     Dosage: 18.013 MG, \DAY
     Route: 037
     Dates: start: 20160411
  3. CLONIDINE. [Suspect]
     Active Substance: CLONIDINE
     Dosage: 120.08 ?G, \DAY
     Route: 037
     Dates: start: 20160411
  4. DILAUDID [Suspect]
     Active Substance: HYDROMORPHONE HYDROCHLORIDE
     Dosage: 2.186 MG, \DAY
     Route: 037
     Dates: start: 20160411
  5. BUPIVACAINE. [Suspect]
     Active Substance: BUPIVACAINE
     Dosage: 21.862 MG, \DAY
     Route: 037
     Dates: start: 20160411
  6. COMPOUNDED BACLOFEN [Suspect]
     Active Substance: BACLOFEN
     Indication: PAIN
     Dosage: 49.96 ?G, \DAY
     Route: 037
     Dates: start: 20160411
  7. DILAUDID [Suspect]
     Active Substance: HYDROMORPHONE HYDROCHLORIDE
     Dosage: 1.801 MG, \DAY
     Route: 037
     Dates: start: 20160411
  8. COMPOUNDED BACLOFEN [Suspect]
     Active Substance: BACLOFEN
     Indication: PAIN
     Dosage: 100.12 ?G, \DAY
     Route: 037
     Dates: start: 20160314
  9. BUPIVACAINE. [Suspect]
     Active Substance: BUPIVACAINE
     Dosage: 15.018 MG, \DAY
     Route: 037
     Dates: start: 20160314
  10. BUPIVACAINE. [Suspect]
     Active Substance: BUPIVACAINE
     Dosage: 18.783 MG, \DAY
     Route: 037
     Dates: start: 20160314
  11. CLONIDINE. [Suspect]
     Active Substance: CLONIDINE
     Dosage: 100.12 ?G, \DAY
     Route: 037
     Dates: start: 20160314
  12. CLONIDINE. [Suspect]
     Active Substance: CLONIDINE
     Dosage: 145.75 ?G, \DAY
     Route: 037
     Dates: start: 20160411
  13. DILAUDID [Suspect]
     Active Substance: HYDROMORPHONE HYDROCHLORIDE
     Dosage: 1.878 MG, \DAY
     Route: 037
     Dates: start: 20160314
  14. COMPOUNDED BACLOFEN [Suspect]
     Active Substance: BACLOFEN
     Dosage: 125.22 ?G, \DAY
     Route: 037
     Dates: start: 20160314
  15. COMPOUNDED BACLOFEN [Suspect]
     Active Substance: BACLOFEN
     Dosage: 120.08 ?G, \DAY
     Route: 037
     Dates: start: 20160411
  16. BUPIVACAINE. [Suspect]
     Active Substance: BUPIVACAINE
     Dosage: 2.998 MG, \DAY
     Route: 037
     Dates: start: 20160411
  17. CLONIDINE. [Suspect]
     Active Substance: CLONIDINE
     Dosage: 49.96 ?G, \DAY
     Route: 037
     Dates: start: 20160411
  18. CLONIDINE. [Suspect]
     Active Substance: CLONIDINE
     Dosage: 125.22 ?G, \DAY
     Route: 037
     Dates: start: 20160314
  19. DILAUDID [Suspect]
     Active Substance: HYDROMORPHONE HYDROCHLORIDE
     Dosage: 0.999 MG, \DAY
     Route: 037
     Dates: start: 20160411
  20. DILAUDID [Suspect]
     Active Substance: HYDROMORPHONE HYDROCHLORIDE
     Dosage: 1.501 MG, \DAY
     Route: 037
     Dates: start: 20160314

REACTIONS (6)
  - Urinary retention [Recovered/Resolved]
  - Muscular weakness [Recovered/Resolved]
  - Pain [Recovered/Resolved]
  - Hypoaesthesia [Recovered/Resolved]
  - Adverse drug reaction [Recovered/Resolved]
  - Off label use [Unknown]
